FAERS Safety Report 26140018 (Version 1)
Quarter: 2025Q4

REPORT INFORMATION
  Report Type: Spontaneous
  Country: US (occurrence: None)
  Receive Date: 20251209
  Receipt Date: 20251209
  Transmission Date: 20260118
  Serious: Yes (Other)
  Sender: FDA-CTU
  Company Number: None

PATIENT
  Age: 80 Year
  Sex: Male
  Weight: 87.75 kg

DRUGS (3)
  1. DUPIXENT [Suspect]
     Active Substance: DUPILUMAB
     Indication: Dermatitis contact
     Dosage: 2 INJECTION EVERY TWO WEEKS SUBCUTANEOUS
     Route: 058
     Dates: start: 20250813, end: 20251014
  2. ATORVASTATIN [Concomitant]
     Active Substance: ATORVASTATIN
  3. One-A-Day vitamins Men^s 50+ [Concomitant]

REACTIONS (3)
  - Erythema [None]
  - Skin exfoliation [None]
  - Therapy cessation [None]

NARRATIVE: CASE EVENT DATE: 20250826
